FAERS Safety Report 20423606 (Version 1)
Quarter: 2022Q1

REPORT INFORMATION
  Report Type: Spontaneous
  Country: US (occurrence: US)
  Receive Date: 20220203
  Receipt Date: 20220203
  Transmission Date: 20220423
  Serious: Yes (Life-Threatening)
  Sender: FDA-Public Use
  Company Number: US-TEVA-2022-US-2002822

PATIENT
  Sex: Female

DRUGS (1)
  1. NEFAZODONE HYDROCHLORIDE [Suspect]
     Active Substance: NEFAZODONE HYDROCHLORIDE
     Dosage: TAKING FOR 25 YEARS
     Route: 065
     Dates: start: 1997

REACTIONS (1)
  - Road traffic accident [Unknown]
